FAERS Safety Report 4773023-0 (Version None)
Quarter: 2005Q3

REPORT INFORMATION
  Report Type: 
  Country: None (occurrence: None)
  Receive Date: 20050916
  Receipt Date: 20050901
  Transmission Date: 20060218
  Serious: Yes (Hospitalization)
  Sender: FDA-Public Use
  Company Number: GB-YAMANOUCHI-YEHQ200050965

PATIENT
  Age: 78 Year
  Sex: Female
  Weight: 62 kg

DRUGS (3)
  1. SOLIFENACIN [Suspect]
     Indication: HYPERTONIC BLADDER
     Dosage: 1 DF QD PO
     Route: 048
     Dates: start: 20050317, end: 20040414
  2. WARFARIN SODIUM [Concomitant]
  3. ISPAGHULA HUSK [Concomitant]

REACTIONS (1)
  - DEEP VEIN THROMBOSIS [None]
